APPROVED DRUG PRODUCT: APREMILAST
Active Ingredient: APREMILAST
Strength: 10MG
Dosage Form/Route: TABLET;ORAL
Application: A211674 | Product #001
Applicant: GLENMARK PHARMACEUTICALS LTD
Approved: Oct 16, 2023 | RLD: No | RS: No | Type: DISCN